FAERS Safety Report 11463946 (Version 1)
Quarter: 2015Q3

REPORT INFORMATION
  Report Type: Spontaneous
  Country: US (occurrence: US)
  Receive Date: 20150831
  Receipt Date: 20150831
  Transmission Date: 20151125
  Serious: Yes (Other)
  Sender: FDA-Public Use
  Company Number: US-ELI_LILLY_AND_COMPANY-US201105006077

PATIENT
  Age: 43 Year
  Sex: Female

DRUGS (1)
  1. CYMBALTA [Suspect]
     Active Substance: DULOXETINE HYDROCHLORIDE
     Indication: NEURALGIA
     Dosage: 30 MG, QD
     Dates: start: 20110505, end: 20110514

REACTIONS (10)
  - Disturbance in attention [Unknown]
  - Gastroenteritis [Unknown]
  - Hyperhidrosis [Unknown]
  - Tremor [Unknown]
  - Vulvovaginal mycotic infection [Not Recovered/Not Resolved]
  - Candida infection [Unknown]
  - Abdominal pain upper [Unknown]
  - Off label use [Recovered/Resolved]
  - Vaginal haemorrhage [Unknown]
  - Decreased appetite [Unknown]

NARRATIVE: CASE EVENT DATE: 20110505
